FAERS Safety Report 7812804-3 (Version None)
Quarter: 2011Q4

REPORT INFORMATION
  Report Type: 
  Country: None (occurrence: None)
  Receive Date: 20111013
  Receipt Date: 20111011
  Transmission Date: 20120403
  Serious: Yes (Other)
  Sender: FDA-Public Use
  Company Number: US-PFIZER INC-2011023930

PATIENT
  Sex: Female

DRUGS (3)
  1. SAVELLA [Concomitant]
     Dosage: 50 MG, 2X/DAY
  2. LYRICA [Suspect]
     Indication: FIBROMYALGIA
     Dosage: 50 MG, 2X/DAY
  3. TYLENOL-500 [Concomitant]
     Indication: PAIN

REACTIONS (2)
  - FIBROMYALGIA [None]
  - DRUG EFFECT DECREASED [None]
